FAERS Safety Report 8766553 (Version 3)
Quarter: 2012Q4

REPORT INFORMATION
  Report Type: 
  Country: KR (occurrence: KR)
  Receive Date: 20120903
  Receipt Date: 20120914
  Transmission Date: 20130627
  Serious: Yes (Hospitalization, Disabling)
  Sender: FDA-Public Use
  Company Number: KR-PFIZER INC-2012213997

PATIENT
  Age: 75 Year
  Sex: Female

DRUGS (1)
  1. CORDARONE [Suspect]
     Indication: ATRIAL FIBRILLATION
     Dosage: 200 mg, 2x/day

REACTIONS (4)
  - Pulmonary toxicity [Recovering/Resolving]
  - Hepatotoxicity [Recovering/Resolving]
  - Keratopathy [Recovering/Resolving]
  - Hypothyroidism [Recovering/Resolving]
